FAERS Safety Report 6466311-3 (Version None)
Quarter: 2009Q4

REPORT INFORMATION
  Report Type: 
  Country: None (occurrence: None)
  Receive Date: 20091202
  Receipt Date: 20091120
  Transmission Date: 20100525
  Serious: Yes (Death, Other)
  Sender: FDA-Public Use
  Company Number: JP-BAYER-200913879BYL

PATIENT
  Age: 12 Year
  Sex: Male

DRUGS (13)
  1. FLUDARA [Suspect]
     Indication: CONGENITAL APLASTIC ANAEMIA
     Route: 042
     Dates: start: 20080201
  2. FLUDARA [Suspect]
     Route: 042
     Dates: start: 20090215, end: 20090220
  3. CYCLOPHOSPHAMIDE [Concomitant]
     Indication: CONGENITAL APLASTIC ANAEMIA
     Route: 065
     Dates: start: 20090401
  4. CYCLOPHOSPHAMIDE [Concomitant]
     Route: 065
     Dates: start: 20080201
  5. ANTI-THYMOCYTE GLOBULIN NOS [Concomitant]
     Indication: UNRELATED DONOR BONE MARROW TRANSPLANTATION THERAPY
     Route: 065
     Dates: start: 20080201
  6. TACROLIMUS [Concomitant]
     Indication: PROPHYLAXIS AGAINST GRAFT VERSUS HOST DISEASE
     Route: 065
  7. METHOTREXATE [Concomitant]
     Indication: PROPHYLAXIS AGAINST GRAFT VERSUS HOST DISEASE
     Route: 065
  8. MYCOPHENOLATE MOFETIL [Concomitant]
     Indication: PROPHYLAXIS AGAINST GRAFT VERSUS HOST DISEASE
     Route: 065
  9. CYTARABINE [Concomitant]
     Indication: PRECURSOR T-LYMPHOBLASTIC LYMPHOMA/LEUKAEMIA
     Route: 041
     Dates: start: 20090201
  10. VINCRISTINE SULFATE [Concomitant]
     Indication: PRECURSOR T-LYMPHOBLASTIC LYMPHOMA/LEUKAEMIA
     Route: 042
     Dates: start: 20090401
  11. ELSPAR [Concomitant]
     Indication: PRECURSOR T-LYMPHOBLASTIC LYMPHOMA/LEUKAEMIA
     Route: 042
     Dates: start: 20090401
  12. PREDNISOLONE [Concomitant]
     Indication: PRECURSOR T-LYMPHOBLASTIC LYMPHOMA/LEUKAEMIA
     Route: 065
     Dates: start: 20090401
  13. METHYLPREDNISOLONE SODIUM SUCCINATE [Concomitant]
     Indication: PRECURSOR T-LYMPHOBLASTIC LYMPHOMA/LEUKAEMIA
     Route: 042
     Dates: start: 20090401

REACTIONS (2)
  - CARDIO-RESPIRATORY ARREST [None]
  - PRECURSOR T-LYMPHOBLASTIC LYMPHOMA/LEUKAEMIA [None]
